FAERS Safety Report 24614384 (Version 1)
Quarter: 2024Q4

REPORT INFORMATION
  Report Type: Spontaneous
  Country: US (occurrence: US)
  Receive Date: 20241113
  Receipt Date: 20241113
  Transmission Date: 20250114
  Serious: No
  Sender: MERCK
  Company Number: US-009507513-2411USA001622

PATIENT
  Age: 90 Year
  Sex: Male

DRUGS (1)
  1. KEYTRUDA [Suspect]
     Active Substance: PEMBROLIZUMAB
     Dosage: UNK

REACTIONS (4)
  - Illness [Unknown]
  - Asthenia [Unknown]
  - Decreased appetite [Unknown]
  - Bradykinesia [Unknown]

NARRATIVE: CASE EVENT DATE: 20241004
